FAERS Safety Report 11723077 (Version 1)
Quarter: 2015Q4

REPORT INFORMATION
  Report Type: Spontaneous
  Country: US (occurrence: None)
  Receive Date: 20151110
  Receipt Date: 20151110
  Transmission Date: 20160304
  Serious: No
  Sender: FDA-Public Use
  Company Number: None

PATIENT
  Age: 81 Year
  Sex: Female
  Weight: 54.43 kg

DRUGS (4)
  1. AMOXICILLIN. [Suspect]
     Active Substance: AMOXICILLIN
     Indication: TOOTH EXTRACTION
     Dosage: 4 PILLS BEFORE TEETH EXTRACTION?2 PILLS A DAY FOR 2 MORE DAYS
  2. D3 [Concomitant]
     Active Substance: 25-HYDROXYCHOLECALCIFEROL, 5-TRANS-
  3. FISH OIL [Concomitant]
     Active Substance: FISH OIL
  4. VITAMIN E [Concomitant]
     Active Substance: .ALPHA.-TOCOPHEROL

REACTIONS (17)
  - Decreased appetite [None]
  - Abdominal pain upper [None]
  - Tongue coated [None]
  - Dyspnoea [None]
  - Hypoaesthesia [None]
  - Lip swelling [None]
  - Tongue discolouration [None]
  - Chromaturia [None]
  - Cough [None]
  - Dysphonia [None]
  - Throat tightness [None]
  - Chest discomfort [None]
  - Gastrointestinal disorder [None]
  - Vomiting [None]
  - Muscle disorder [None]
  - Fatigue [None]
  - Faeces pale [None]
